FAERS Safety Report 8311178-1 (Version None)
Quarter: 2012Q2

REPORT INFORMATION
  Report Type: 
  Country: None (occurrence: None)
  Receive Date: 20120423
  Receipt Date: 20111129
  Transmission Date: 20120825
  Serious: Yes (Hospitalization, Disabling)
  Sender: FDA-Public Use
  Company Number: DSA_56218_2012

PATIENT
  Age: 52 Year
  Sex: Female

DRUGS (4)
  1. FLAGYL [Suspect]
     Indication: PRODUCT USED FOR UNKNOWN INDICATION
     Dosage: (500 MG BID ORAL)
     Route: 048
     Dates: start: 20060601, end: 20090401
  2. CRESTOR [Suspect]
     Indication: PRODUCT USED FOR UNKNOWN INDICATION
     Dosage: (DF)
     Dates: start: 20050101, end: 20061030
  3. LORAZEPAM [Concomitant]
  4. FLUVASTATIN [Suspect]
     Indication: PRODUCT USED FOR UNKNOWN INDICATION
     Dosage: (40 MG QD ORAL)
     Route: 048
     Dates: start: 20061030

REACTIONS (5)
  - PERIPHERAL SENSORY NEUROPATHY [None]
  - FALL [None]
  - VASCULITIS [None]
  - BALANCE DISORDER [None]
  - ATAXIA [None]
